FAERS Safety Report 9077825 (Version 1)
Quarter: 2013Q1

REPORT INFORMATION
  Report Type: Report from Study
  Country: US (occurrence: US)
  Receive Date: 20130130
  Receipt Date: 20130130
  Transmission Date: 20140127
  Serious: No
  Sender: FDA-Public Use
  Company Number: US-ABBOTT-12P-163-0964718-00

PATIENT
  Age: 51 Year
  Sex: Female

DRUGS (5)
  1. HUMIRA 40 MG/0.8 ML PEN [Suspect]
     Indication: RHEUMATOID ARTHRITIS
     Route: 058
     Dates: start: 201204
  2. LEFLUNOMIDE [Concomitant]
     Indication: RHEUMATOID ARTHRITIS
     Dosage: 1 DAILY
     Route: 048
  3. PREDNISONE [Concomitant]
     Indication: RHEUMATOID ARTHRITIS
     Dosage: 5 MG EVERY DAY
     Route: 048
  4. UNKNOWN HYDRO MEDICATION [Concomitant]
     Indication: RHEUMATOID ARTHRITIS
  5. HYDROCODONE [Concomitant]
     Indication: PAIN

REACTIONS (2)
  - Incorrect dose administered [Recovered/Resolved]
  - Injection site vesicles [Recovered/Resolved]
